FAERS Safety Report 9126929 (Version 6)
Quarter: 2017Q3

REPORT INFORMATION
  Report Type: Report from Study
  Country: BR (occurrence: BR)
  Receive Date: 20130228
  Receipt Date: 20170802
  Transmission Date: 20171128
  Serious: Yes (Other)
  Sender: FDA-Public Use
  Company Number: PHHY2013BR017895

PATIENT
  Age: 73 Year
  Sex: Female
  Weight: 53 kg

DRUGS (20)
  1. DEPURA [Concomitant]
     Active Substance: CHOLECALCIFEROL
     Indication: PRODUCT USED FOR UNKNOWN INDICATION
     Dosage: UNK UKN, UNK
     Route: 065
  2. BEROTEC [Concomitant]
     Active Substance: FENOTEROL HYDROBROMIDE
     Indication: PRODUCT USED FOR UNKNOWN INDICATION
     Dosage: UNK
     Route: 055
  3. PROLIEF [Concomitant]
     Indication: PRODUCT USED FOR UNKNOWN INDICATION
     Dosage: UNK
     Route: 065
  4. ALLEGRA [Concomitant]
     Active Substance: FEXOFENADINE HYDROCHLORIDE
     Indication: HYPERSENSITIVITY
     Dosage: UNK UNK, PRN
     Route: 048
  5. BENADRYL [Concomitant]
     Active Substance: DIPHENHYDRAMINE HYDROCHLORIDE
     Indication: HYPERSENSITIVITY
     Route: 065
  6. DIOVAN [Concomitant]
     Active Substance: VALSARTAN
     Indication: HYPERTENSION
     Dosage: 1 DF, QD
     Route: 065
  7. FORASEQ [Suspect]
     Active Substance: BUDESONIDE\FORMOTEROL FUMARATE
     Indication: ASTHMA
     Dosage: 2 DF, QD EACH TREATMENT
     Route: 055
  8. DIOVAN HCT [Concomitant]
     Active Substance: HYDROCHLOROTHIAZIDE\VALSARTAN
     Indication: HYPERTENSION
     Dosage: 1 DF, QD
     Route: 048
  9. TAPAZOL [Concomitant]
     Indication: THYROID DISORDER
     Dosage: 5 MG, QD
     Route: 048
  10. PRELONE [Concomitant]
     Active Substance: PREDNISOLONE
     Indication: PRODUCT USED FOR UNKNOWN INDICATION
     Dosage: UNK
     Route: 065
  11. SODIUM HYDROXIDE. [Concomitant]
     Active Substance: SODIUM HYDROXIDE
     Indication: PRODUCT USED FOR UNKNOWN INDICATION
     Dosage: UNK
     Route: 065
  12. SERTRALINE [Concomitant]
     Active Substance: SERTRALINE HYDROCHLORIDE
     Indication: NERVOUSNESS
     Dosage: 1 DF, QD
     Route: 065
  13. DEPURAN [Concomitant]
     Indication: VITAMIN SUPPLEMENTATION
     Dosage: 5 DRP, QD
     Route: 048
  14. ALENDRONATE [Concomitant]
     Active Substance: ALENDRONATE SODIUM
     Indication: OSTEOPOROSIS
     Dosage: 70 MG, QW
     Route: 048
  15. XOLAIR [Suspect]
     Active Substance: OMALIZUMAB
     Dosage: 300 MG, BIW
     Route: 058
     Dates: start: 20130515
  16. OSTEONUTRI [Concomitant]
     Indication: PRODUCT USED FOR UNKNOWN INDICATION
     Dosage: UNK
     Route: 065
  17. XOLAIR [Suspect]
     Active Substance: OMALIZUMAB
     Dosage: 300 MG, (02 VIALS) EVERY 15 DAYS
     Route: 058
     Dates: start: 20110201
  18. XOLAIR [Suspect]
     Active Substance: OMALIZUMAB
     Dosage: 2 DF, EVERY 15 DAYS
     Route: 065
  19. XOLAIR [Suspect]
     Active Substance: OMALIZUMAB
     Indication: ASTHMA
     Dosage: 2 VIALS, EVERY 15 DAYS
     Route: 058
  20. CALCIUM [Concomitant]
     Active Substance: CALCIUM
     Indication: BONE DISORDER
     Dosage: 1 DF, QD
     Route: 065

REACTIONS (19)
  - Renal vein occlusion [Recovering/Resolving]
  - Asthma [Recovering/Resolving]
  - Head discomfort [Not Recovered/Not Resolved]
  - Pyrexia [Unknown]
  - Deafness [Not Recovered/Not Resolved]
  - Hypotension [Recovering/Resolving]
  - Weight fluctuation [Unknown]
  - Tinnitus [Not Recovered/Not Resolved]
  - Dyspnoea [Recovering/Resolving]
  - Productive cough [Recovering/Resolving]
  - Mycotic allergy [Unknown]
  - Pruritus generalised [Unknown]
  - Asthmatic crisis [Unknown]
  - Gastrointestinal disorder [Unknown]
  - Blood cholesterol increased [Recovering/Resolving]
  - Dust allergy [Unknown]
  - Influenza [Recovered/Resolved]
  - Oropharyngeal pain [Recovering/Resolving]
  - Wheezing [Recovering/Resolving]

NARRATIVE: CASE EVENT DATE: 201211
